FAERS Safety Report 20730087 (Version 2)
Quarter: 2022Q2

REPORT INFORMATION
  Report Type: Spontaneous
  Country: US (occurrence: US)
  Receive Date: 20220420
  Receipt Date: 20220509
  Transmission Date: 20220721
  Serious: No
  Sender: FDA-Public Use
  Company Number: US-PFIZER INC-202200452091

PATIENT
  Age: 47 Year
  Sex: Female
  Weight: 61.23 kg

DRUGS (1)
  1. PRISTIQ EXTENDED-RELEASE [Suspect]
     Active Substance: DESVENLAFAXINE SUCCINATE
     Indication: Depression
     Dosage: UNK

REACTIONS (5)
  - Migraine [Unknown]
  - Psychiatric symptom [Unknown]
  - Anxiety [Unknown]
  - Hormone level abnormal [Unknown]
  - Nervousness [Unknown]
